FAERS Safety Report 6283021-6 (Version None)
Quarter: 2009Q3

REPORT INFORMATION
  Report Type: 
  Country: None (occurrence: None)
  Receive Date: 20090724
  Receipt Date: 20090720
  Transmission Date: 20100115
  Serious: Yes (Hospitalization)
  Sender: FDA-Public Use
  Company Number: FR-BRISTOL-MYERS SQUIBB COMPANY-14708986

PATIENT
  Age: 85 Year
  Sex: Female

DRUGS (6)
  1. COUMADIN [Suspect]
     Indication: PULMONARY EMBOLISM
     Route: 048
     Dates: start: 20090201, end: 20090215
  2. EXELON [Concomitant]
  3. IMOVANE [Concomitant]
  4. POLYETHYLENE GLYCOL [Concomitant]
  5. EDUCTYL [Concomitant]
  6. DAFALGAN [Concomitant]

REACTIONS (6)
  - HAEMATEMESIS [None]
  - INFLAMMATION [None]
  - INTERNATIONAL NORMALISED RATIO INCREASED [None]
  - MALNUTRITION [None]
  - OVERDOSE [None]
  - SHOCK HAEMORRHAGIC [None]
